FAERS Safety Report 13325955 (Version 1)
Quarter: 2017Q1

REPORT INFORMATION
  Report Type: Spontaneous
  Country: US (occurrence: US)
  Receive Date: 20170310
  Receipt Date: 20170310
  Transmission Date: 20170428
  Serious: Yes (Other)
  Sender: FDA-Public Use
  Company Number: US-TEVA-747211USA

PATIENT
  Sex: Female
  Weight: 68.1 kg

DRUGS (3)
  1. NOSTRUM [Concomitant]
     Indication: GASTROOESOPHAGEAL REFLUX DISEASE
  2. QVAR [Suspect]
     Active Substance: BECLOMETHASONE DIPROPIONATE
     Indication: ASTHMA
     Dates: start: 201612
  3. RESTASIS [Concomitant]
     Active Substance: CYCLOSPORINE
     Indication: DRY EYE

REACTIONS (7)
  - Activities of daily living impaired [Unknown]
  - Gastroenteritis viral [Unknown]
  - Muscular weakness [Unknown]
  - Fibromyalgia [Unknown]
  - Dry mouth [Unknown]
  - Abasia [Unknown]
  - Headache [Unknown]
